FAERS Safety Report 24948920 (Version 1)
Quarter: 2025Q1

REPORT INFORMATION
  Report Type: Spontaneous
  Country: AT (occurrence: AT)
  Receive Date: 20250210
  Receipt Date: 20250210
  Transmission Date: 20250409
  Serious: Yes (Hospitalization)
  Sender: PFIZER
  Company Number: AT-PFIZER INC-202500026317

PATIENT
  Sex: Female

DRUGS (1)
  1. LORAZEPAM [Suspect]
     Active Substance: LORAZEPAM
     Dosage: 5 MG, DAILY

REACTIONS (5)
  - Coma [Unknown]
  - Muscle spasms [Unknown]
  - Aphasia [Unknown]
  - Feeding disorder [Unknown]
  - Urinary incontinence [Unknown]
